FAERS Safety Report 22095692 (Version 1)
Quarter: 2023Q1

REPORT INFORMATION
  Report Type: Spontaneous
  Country: US (occurrence: US)
  Receive Date: 20230314
  Receipt Date: 20230314
  Transmission Date: 20230417
  Serious: No
  Sender: FDA-Public Use
  Company Number: US-PFIZER INC-202300105834

PATIENT
  Age: 79 Year
  Sex: Female

DRUGS (9)
  1. XELJANZ XR [Suspect]
     Active Substance: TOFACITINIB CITRATE
     Indication: Rheumatoid arthritis
     Dosage: 11 MG, DAILY
     Route: 048
     Dates: start: 20230131
  2. PREDNISONE [Concomitant]
     Active Substance: PREDNISONE
     Dosage: UNK
  3. SYNTHROID [Concomitant]
     Active Substance: LEVOTHYROXINE SODIUM
     Dosage: UNK
  4. ARAVA [Concomitant]
     Active Substance: LEFLUNOMIDE
     Dosage: UNK
  5. ATORVASTATIN CALCIUM [Concomitant]
     Active Substance: ATORVASTATIN CALCIUM
     Dosage: UNK
  6. ASPIRIN [Concomitant]
     Active Substance: ASPIRIN
     Dosage: UNK, CHEW
  7. HYDROCHLOROTHIAZIDE SAR [Concomitant]
     Dosage: 12.5 MG
  8. LOSARTAN POTASSIUM [Concomitant]
     Active Substance: LOSARTAN POTASSIUM
     Dosage: UNK
  9. OMEPRAZOLE [Concomitant]
     Active Substance: OMEPRAZOLE
     Dosage: UNK

REACTIONS (1)
  - Therapeutic product effect incomplete [Unknown]
